FAERS Safety Report 9535944 (Version 2)
Quarter: 2013Q3

REPORT INFORMATION
  Report Type: Report from Study
  Country: US (occurrence: US)
  Receive Date: 20130919
  Receipt Date: 20130923
  Transmission Date: 20140515
  Serious: Yes (Hospitalization)
  Sender: FDA-Public Use
  Company Number: US-ROCHE-1275598

PATIENT
  Age: 16 Year
  Sex: Male

DRUGS (2)
  1. SOMATROPIN [Suspect]
     Indication: DWARFISM
     Route: 058
     Dates: start: 20120223
  2. SOMATROPIN [Suspect]
     Indication: OFF LABEL USE

REACTIONS (3)
  - Abnormal behaviour [Recovered/Resolved]
  - Incorrect dose administered [Unknown]
  - Drug dose omission [Unknown]
